FAERS Safety Report 7892916-9 (Version None)
Quarter: 2011Q4

REPORT INFORMATION
  Report Type: 
  Country: None (occurrence: None)
  Receive Date: 20111104
  Receipt Date: 20111025
  Transmission Date: 20120403
  Serious: Yes (Other)
  Sender: FDA-Public Use
  Company Number: US-JNJFOC-20111011313

PATIENT
  Age: 11 Year
  Sex: Male

DRUGS (1)
  1. INFLIXIMAB, RECOMBINANT [Suspect]
     Indication: CROHN'S DISEASE
     Dosage: ONCE IN EVERY 6-7 WEEKS. THE PATIENT WAS ON INFLIXIMAB SINCE 3.3 YEARS
     Route: 042

REACTIONS (1)
  - PSORIASIS [None]
